FAERS Safety Report 13985717 (Version 1)
Quarter: 2017Q3

REPORT INFORMATION
  Report Type: Report from Study
  Country: US (occurrence: US)
  Receive Date: 20170919
  Receipt Date: 20170919
  Transmission Date: 20171128
  Serious: Yes (Hospitalization)
  Sender: FDA-Public Use
  Company Number: US-ROCHE-1994259

PATIENT
  Age: 76 Year
  Sex: Female

DRUGS (7)
  1. ALTEPLASE. [Suspect]
     Active Substance: ALTEPLASE
     Indication: SEGMENTED HYALINISING VASCULITIS
     Route: 042
     Dates: start: 199102
  2. ALTEPLASE. [Suspect]
     Active Substance: ALTEPLASE
     Route: 042
     Dates: start: 199107
  3. ASPIRIN. [Suspect]
     Active Substance: ASPIRIN
     Indication: SEGMENTED HYALINISING VASCULITIS
     Dosage: LOW DOSE
     Route: 065
     Dates: start: 199102
  4. WARFARIN [Suspect]
     Active Substance: WARFARIN
     Indication: SEGMENTED HYALINISING VASCULITIS
     Dosage: LOW DOSE
     Route: 065
     Dates: start: 199102
  5. WARFARIN [Suspect]
     Active Substance: WARFARIN
     Route: 065
     Dates: start: 199107
  6. ASPIRIN. [Suspect]
     Active Substance: ASPIRIN
     Route: 065
     Dates: start: 199107
  7. HEPARIN [Suspect]
     Active Substance: HEPARIN SODIUM
     Indication: SEGMENTED HYALINISING VASCULITIS
     Dosage: 11,000 U
     Route: 058
     Dates: start: 199107

REACTIONS (1)
  - Cerebral haemorrhage [Recovering/Resolving]
